FAERS Safety Report 10837859 (Version 1)
Quarter: 2015Q1

REPORT INFORMATION
  Report Type: Report from Study
  Country: US (occurrence: US)
  Receive Date: 20150219
  Receipt Date: 20150219
  Transmission Date: 20150721
  Serious: No
  Sender: FDA-Public Use
  Company Number: US-ABBVIE-14P-163-1220373-00

PATIENT
  Age: 50 Year
  Sex: Female

DRUGS (2)
  1. HUMIRA [Suspect]
     Active Substance: ADALIMUMAB
     Indication: PSORIASIS
     Dosage: LOADING DOSE
     Route: 058
     Dates: start: 20140328, end: 20140328
  2. HUMIRA [Suspect]
     Active Substance: ADALIMUMAB
     Indication: PSORIATIC ARTHROPATHY
     Route: 058

REACTIONS (6)
  - Feeling abnormal [Not Recovered/Not Resolved]
  - Oedema peripheral [Unknown]
  - Fatigue [Unknown]
  - Diarrhoea [Unknown]
  - Hypersomnia [Not Recovered/Not Resolved]
  - Fatigue [Not Recovered/Not Resolved]

NARRATIVE: CASE EVENT DATE: 20140329
